FAERS Safety Report 8140102-X (Version None)
Quarter: 2012Q1

REPORT INFORMATION
  Report Type: 
  Country: None (occurrence: None)
  Receive Date: 20120216
  Receipt Date: 20120201
  Transmission Date: 20120608
  Serious: Yes (Other)
  Sender: FDA-Public Use
  Company Number: US-AMGEN-USACT2012007815

PATIENT
  Age: 17 Year
  Sex: Male
  Weight: 68.934 kg

DRUGS (3)
  1. FOLIC ACID [Concomitant]
     Dosage: UNK
  2. ETANERCEPT [Suspect]
     Indication: ANKYLOSING SPONDYLITIS
     Dosage: 50 MG, WEEKLY, 3.25 YEARS
  3. METHOTREXATE SODIUM [Concomitant]
     Indication: ANKYLOSING SPONDYLITIS
     Dosage: 25 MG, WEEKLY, 3.5 YEARS
     Route: 058

REACTIONS (1)
  - AMNESIA [None]
